FAERS Safety Report 12850258 (Version 2)
Quarter: 2016Q4

REPORT INFORMATION
  Report Type: Report from Study
  Country: AR (occurrence: AR)
  Receive Date: 20161014
  Receipt Date: 20161026
  Transmission Date: 20170207
  Serious: Yes (Other)
  Sender: FDA-Public Use
  Company Number: PHHY2016AR125103

PATIENT
  Sex: Male
  Weight: 130 kg

DRUGS (6)
  1. HIDROTISONA [Concomitant]
     Indication: PRODUCT USED FOR UNKNOWN INDICATION
     Dosage: 30 MG, QD
     Route: 065
  2. EXFORGE [Suspect]
     Active Substance: AMLODIPINE BESYLATE\VALSARTAN
     Indication: HYPERTENSION
     Dosage: 1 DF (AMLODIPINE 5 MG, VALSARTAN 160 MG), QD
     Route: 065
  3. ACETYLSALICYLIC ACID [Concomitant]
     Active Substance: ASPIRIN
     Indication: PRODUCT USED FOR UNKNOWN INDICATION
     Dosage: 100 MG,
     Route: 065
  4. BISOPROLOL [Concomitant]
     Active Substance: BISOPROLOL
     Indication: PRODUCT USED FOR UNKNOWN INDICATION
     Route: 065
  5. LEVOTHYROXINE. [Concomitant]
     Active Substance: LEVOTHYROXINE
     Indication: PRODUCT USED FOR UNKNOWN INDICATION
     Dosage: 75 MG, QD
     Route: 065
  6. EXFORGE [Suspect]
     Active Substance: AMLODIPINE BESYLATE\VALSARTAN
     Dosage: 0.5 DF, QD (AMLODIPINE 5, VALSARTAN 160 (UNIT NOT REPORTED)) (3 OR 4 YEARS AGO)
     Route: 065

REACTIONS (13)
  - Bladder cancer [Unknown]
  - Maculopathy [Unknown]
  - Vision blurred [Unknown]
  - Polyp [Unknown]
  - Body temperature abnormal [Unknown]
  - Retinopathy [Unknown]
  - Overweight [Unknown]
  - Fatigue [Unknown]
  - Mean arterial pressure decreased [Unknown]
  - Blood pressure decreased [Recovering/Resolving]
  - Blepharitis [Not Recovered/Not Resolved]
  - Drug prescribing error [Unknown]
  - Wrong technique in product usage process [Unknown]
